FAERS Safety Report 9056678 (Version 1)
Quarter: 2013Q1

REPORT INFORMATION
  Report Type: Spontaneous
  Country: US (occurrence: US)
  Receive Date: 20130204
  Receipt Date: 20130204
  Transmission Date: 20140127
  Serious: No
  Sender: FDA-Public Use
  Company Number: US-AMGEN-USASP2013000604

PATIENT
  Age: 65 Year
  Sex: Female

DRUGS (2)
  1. ENBREL [Suspect]
     Indication: ARTHRITIS
     Dosage: 50 MG, QWK
     Dates: start: 20130101, end: 20130106
  2. METHOTREXATE [Concomitant]
     Dosage: 8 TABLETS (2.5 MG EACH), QWK
     Route: 048
     Dates: start: 2012, end: 2012

REACTIONS (6)
  - Cough [Not Recovered/Not Resolved]
  - Pain [Not Recovered/Not Resolved]
  - Arthralgia [Not Recovered/Not Resolved]
  - Nasal congestion [Not Recovered/Not Resolved]
  - Choking sensation [Not Recovered/Not Resolved]
  - Injection site erythema [Not Recovered/Not Resolved]
